FAERS Safety Report 9419153 (Version 1)
Quarter: 2013Q3

REPORT INFORMATION
  Report Type: Spontaneous
  Country: GB (occurrence: GB)
  Receive Date: 20130725
  Receipt Date: 20130725
  Transmission Date: 20140515
  Serious: Yes (Other)
  Sender: FDA-Public Use
  Company Number: GB-ASTRAZENECA-2013SE47966

PATIENT
  Age: 63 Year
  Sex: Female

DRUGS (6)
  1. BUPIVACAINE [Suspect]
     Route: 065
     Dates: start: 201302
  2. LIGNOCAINE [Suspect]
     Route: 065
     Dates: start: 201209
  3. KENALOG [Suspect]
     Indication: ARTHROPATHY
     Route: 014
     Dates: start: 201209
  4. KENALOG [Suspect]
     Indication: ARTHRALGIA
     Route: 014
     Dates: start: 201209
  5. KENALOG [Suspect]
     Indication: ARTHROPATHY
     Route: 014
     Dates: start: 201302
  6. KENALOG [Suspect]
     Indication: ARTHRALGIA
     Route: 014
     Dates: start: 201302

REACTIONS (2)
  - Dermatitis [Recovered/Resolved]
  - Urticaria [Recovered/Resolved]
